FAERS Safety Report 10595803 (Version 2)
Quarter: 2014Q4

REPORT INFORMATION
  Report Type: Report from Study
  Country: GB (occurrence: GB)
  Receive Date: 20141120
  Receipt Date: 20141120
  Transmission Date: 20150529
  Serious: Yes (Hospitalization)
  Sender: FDA-Public Use
  Company Number: GB-ASTRAZENECA-2014SE83857

PATIENT
  Age: 26350 Day
  Sex: Female

DRUGS (3)
  1. CARBOPLATIN. [Suspect]
     Active Substance: CARBOPLATIN
     Indication: TRANSITIONAL CELL CARCINOMA
     Dosage: 290 MG ON DAY 1 OF EACH 21 DAY CYCLE
     Route: 042
     Dates: start: 20140710, end: 20141028
  2. ZD6474 [Suspect]
     Active Substance: VANDETANIB
     Indication: TRANSITIONAL CELL CARCINOMA
     Route: 048
     Dates: start: 20140710, end: 20141028
  3. GEMCITABINE [Suspect]
     Active Substance: GEMCITABINE\GEMCITABINE HYDROCHLORIDE
     Indication: TRANSITIONAL CELL CARCINOMA
     Dosage: 1131 MG/M2 OVER A 30 MIN IV INFUSION ON DAY 1 AND 8 OF EACH 21 DAY CYCLE
     Route: 042
     Dates: start: 20140710, end: 20141028

REACTIONS (1)
  - Febrile neutropenia [Recovered/Resolved]

NARRATIVE: CASE EVENT DATE: 20141102
